FAERS Safety Report 5079466-2 (Version None)
Quarter: 2006Q3

REPORT INFORMATION
  Report Type: 
  Country: None (occurrence: None)
  Receive Date: 20060814
  Receipt Date: 20060622
  Transmission Date: 20061208
  Serious: Yes (Hospitalization)
  Sender: FDA-Public Use
  Company Number: US-BRISTOL-MYERS SQUIBB COMPANY-13420047

PATIENT
  Age: 72 Year
  Sex: Female
  Weight: 61 kg

DRUGS (11)
  1. CARBOPLATIN [Suspect]
     Indication: OVARIAN CANCER
     Route: 042
     Dates: start: 20060412
  2. PACLITAXEL [Suspect]
     Indication: OVARIAN CANCER
     Route: 042
     Dates: start: 20060412
  3. NEULASTA [Concomitant]
     Dates: start: 20060525
  4. ZANTAC [Concomitant]
  5. CLONIDINE [Concomitant]
  6. LIPITOR [Concomitant]
  7. ATIVAN [Concomitant]
     Dates: start: 20060412
  8. COMPAZINE [Concomitant]
     Dates: start: 20060412
  9. VICODIN [Concomitant]
     Dates: start: 20060412
  10. ALEVE (CAPLET) [Concomitant]
  11. ACTONEL [Concomitant]

REACTIONS (9)
  - BLOOD POTASSIUM DECREASED [None]
  - BODY TEMPERATURE INCREASED [None]
  - CONSTIPATION [None]
  - DEHYDRATION [None]
  - NAUSEA [None]
  - PYREXIA [None]
  - URINARY TRACT INFECTION [None]
  - VOMITING [None]
  - WHITE BLOOD CELL COUNT INCREASED [None]
